FAERS Safety Report 22137914 (Version 6)
Quarter: 2024Q4

REPORT INFORMATION
  Report Type: Report from Study
  Country: US (occurrence: US)
  Receive Date: 20230325
  Receipt Date: 20241028
  Transmission Date: 20250115
  Serious: No
  Sender: NOVARTIS
  Company Number: US-002147023-NVSC2023US069578

PATIENT
  Age: 73 Year
  Sex: Female
  Weight: 65 kg

DRUGS (1)
  1. LEQVIO [Suspect]
     Active Substance: INCLISIRAN SODIUM
     Indication: Dyslipidaemia
     Dosage: UNK (284 MG/1.5 ML)
     Route: 058
     Dates: start: 20230210, end: 20240607

REACTIONS (3)
  - General physical health deterioration [Unknown]
  - Product dose omission in error [Unknown]
  - Injection site pain [Unknown]

NARRATIVE: CASE EVENT DATE: 20230210
